FAERS Safety Report 11801396 (Version 2)
Quarter: 2016Q1

REPORT INFORMATION
  Report Type: Spontaneous
  Country: US (occurrence: US)
  Receive Date: 20151204
  Receipt Date: 20160120
  Transmission Date: 20160525
  Serious: No
  Sender: FDA-Public Use
  Company Number: US-PFIZER INC-2015427428

PATIENT
  Age: 60 Year
  Sex: Female
  Weight: 52 kg

DRUGS (4)
  1. METHOTREXATE [Suspect]
     Active Substance: METHOTREXATE
     Indication: RHEUMATOID ARTHRITIS
     Dosage: FIVE PILLS ONCE EVERY WEEK
  2. THYROID [Concomitant]
     Active Substance: LEVOTHYROXINE\LIOTHYRONINE
     Indication: THYROID DISORDER
     Dosage: 88MCG ONCE A DAY
  3. FOSAMAX [Concomitant]
     Active Substance: ALENDRONATE SODIUM
     Indication: OSTEOPOROSIS
     Dosage: 70MG ONCE A WEEK
  4. XELJANZ [Suspect]
     Active Substance: TOFACITINIB CITRATE
     Indication: RHEUMATOID ARTHRITIS
     Dosage: 5MG (1 TABLET) 2X/DAY
     Route: 048
     Dates: end: 20151110

REACTIONS (4)
  - Peripheral swelling [Recovering/Resolving]
  - Drug ineffective [Unknown]
  - Joint swelling [Recovering/Resolving]
  - Paraesthesia [Recovering/Resolving]
